FAERS Safety Report 4947956-6 (Version None)
Quarter: 2006Q1

REPORT INFORMATION
  Report Type: 
  Country: None (occurrence: None)
  Receive Date: 20060313
  Receipt Date: 20060225
  Transmission Date: 20060701
  Serious: Yes (Death, Life-Threatening, Hospitalization, Other)
  Sender: FDA-Public Use
  Company Number: 2006-00151

PATIENT
  Age: 49 Year
  Sex: Male
  Weight: 56 kg

DRUGS (12)
  1. VELCADE [Suspect]
     Indication: MULTIPLE MYELOMA
     Dosage: 1.30 MG/M2, INTRAVENOUS
     Route: 042
     Dates: start: 20051003, end: 20051030
  2. VELCADE [Suspect]
     Indication: MULTIPLE MYELOMA
     Dosage: 1.30 MG/M2, INTRAVENOUS
     Route: 042
     Dates: start: 20051031, end: 20051219
  3. DOXIL [Suspect]
     Indication: MULTIPLE MYELOMA
     Dosage: 23.00 MG/M2, INTRAVENOUS
     Route: 042
     Dates: start: 20051006, end: 20051006
  4. DOXIL [Suspect]
     Indication: MULTIPLE MYELOMA
     Dosage: 23.00 MG/M2, INTRAVENOUS
     Route: 042
     Dates: start: 20051121, end: 20051215
  5. ACYCLOVIR [Concomitant]
  6. PYRIDOXINE HCL [Concomitant]
  7. AMOXICILLIN [Concomitant]
  8. DOMPERIDONE [Concomitant]
  9. GRANISETRON [Concomitant]
  10. FILGRASTIM [Concomitant]
  11. ACETAMINOPHEN [Concomitant]
  12. RANITIDINE [Concomitant]

REACTIONS (14)
  - ACUTE LEFT VENTRICULAR FAILURE [None]
  - ARTERIOSCLEROSIS CORONARY ARTERY [None]
  - BLOOD CREATININE INCREASED [None]
  - CARDIAC ARREST [None]
  - CARDIAC FAILURE CHRONIC [None]
  - CORONARY ARTERY OCCLUSION [None]
  - ELECTROCARDIOGRAM ST SEGMENT DEPRESSION [None]
  - FEBRILE NEUTROPENIA [None]
  - MALIGNANT NEOPLASM PROGRESSION [None]
  - MULTIPLE MYELOMA [None]
  - MYOCARDIAL ISCHAEMIA [None]
  - PULMONARY OEDEMA [None]
  - REFUSAL OF TREATMENT BY PATIENT [None]
  - VENTRICULAR HYPOKINESIA [None]
